FAERS Safety Report 7367514-6 (Version None)
Quarter: 2011Q1

REPORT INFORMATION
  Report Type: 
  Country: None (occurrence: None)
  Receive Date: 20110322
  Receipt Date: 20100817
  Transmission Date: 20110831
  Serious: Yes (Hospitalization, Other)
  Sender: FDA-Public Use
  Company Number: US-BAYER-201028286NA

PATIENT
  Sex: Female
  Weight: 97.959 kg

DRUGS (10)
  1. PHENTERMINE [Concomitant]
  2. YAZ [Suspect]
     Indication: PRODUCT USED FOR UNKNOWN INDICATION
     Dosage: UNK UNK, UNK
     Route: 048
     Dates: start: 20070601, end: 20081001
  3. DIVALPROEX SODIUM [Concomitant]
     Indication: PAIN
     Dosage: UNK
     Dates: start: 20080101
  4. LORTAB [Concomitant]
  5. ZOLOFT [Concomitant]
  6. VICODIN [Concomitant]
  7. PROTONIX [Concomitant]
  8. ACETAMINOPHEN AND HYDROCODONE BITARTRATE [Concomitant]
  9. IMITREX [Concomitant]
     Indication: MIGRAINE
     Dosage: UNK
     Dates: start: 20080101
  10. DEPAKOTE [Concomitant]

REACTIONS (6)
  - ABDOMINAL PAIN UPPER [None]
  - GALLBLADDER DISORDER [None]
  - ABDOMINAL PAIN [None]
  - CHOLELITHIASIS [None]
  - CHOLECYSTITIS [None]
  - MIGRAINE [None]
